FAERS Safety Report 22248862 (Version 1)
Quarter: 2023Q2

REPORT INFORMATION
  Report Type: Spontaneous
  Country: US (occurrence: US)
  Receive Date: 20230425
  Receipt Date: 20230425
  Transmission Date: 20230722
  Serious: Yes (Other)
  Sender: FDA-Public Use
  Company Number: US-drreddys-SPO/USA/23/0164067

PATIENT
  Age: 5 Year
  Sex: Female

DRUGS (6)
  1. DEXAMETHASONE [Suspect]
     Active Substance: DEXAMETHASONE
     Indication: Haemophagocytic lymphohistiocytosis
     Dosage: INCREASED TO 5 MG/M2 TWICE DAILY
  2. DEXAMETHASONE [Suspect]
     Active Substance: DEXAMETHASONE
     Dosage: PER PROTOCOL, DEXAMETHASONE WAS TAPERED, DEXAMETHASONE FROM 10 TO 2.5 MG/M2/DAY
  3. DEXAMETHASONE [Suspect]
     Active Substance: DEXAMETHASONE
     Dosage: GRADUALLY WEANED TO AVOID RELAPSE OF HER SHLH
  4. DEXAMETHASONE [Suspect]
     Active Substance: DEXAMETHASONE
     Dosage: 5 MG/M2 TWICE DAILY
  5. ETOPOSIDE [Concomitant]
     Active Substance: ETOPOSIDE
     Indication: Haemophagocytic lymphohistiocytosis
     Dosage: 150 MG/M2 TWICE WEEKLY, PROTOCOL HLH-94
  6. ETOPOSIDE [Concomitant]
     Active Substance: ETOPOSIDE
     Dosage: PER PROTOCOL,  ETOPOSIDE WERE TAPERED, ETOPOSIDE FROM TWICE WEEKLY DOSING TO WEEKLY

REACTIONS (4)
  - Hyperglycaemia [Unknown]
  - Myopathy [Unknown]
  - Candida infection [Unknown]
  - Cushingoid [Unknown]
